FAERS Safety Report 4908189-2 (Version None)
Quarter: 2006Q1

REPORT INFORMATION
  Report Type: 
  Country: None (occurrence: None)
  Receive Date: 20060113
  Receipt Date: 20051006
  Transmission Date: 20060701
  Serious: Yes (Other)
  Sender: FDA-Public Use
  Company Number: HQWYE931210OCT05

PATIENT
  Sex: Female

DRUGS (8)
  1. PREMPRO [Suspect]
  2. ESTRACE [Suspect]
  3. ESTRATAB [Suspect]
  4. MEDROXYPROGESTERONE [Suspect]
  5. MICRONOR [Suspect]
  6. PREMARIN [Suspect]
  7. PROMETRIUM [Concomitant]
  8. PROVERA [Suspect]

REACTIONS (1)
  - BREAST CANCER [None]
